FAERS Safety Report 5566832-1 (Version None)
Quarter: 2007Q4

REPORT INFORMATION
  Report Type: 
  Country: None (occurrence: None)
  Receive Date: 20071219
  Receipt Date: 20071210
  Transmission Date: 20080405
  Serious: Yes (Hospitalization)
  Sender: FDA-Public Use
  Company Number: B0500310A

PATIENT
  Age: 36 Year
  Sex: Female

DRUGS (9)
  1. AUGMENTIN '125' [Suspect]
     Route: 048
     Dates: start: 20070924, end: 20071011
  2. FLAGYL [Suspect]
     Dosage: 500MG PER DAY
     Route: 048
     Dates: start: 20071002, end: 20071011
  3. PREVISCAN [Suspect]
     Indication: ANTIPHOSPHOLIPID SYNDROME
     Dosage: 20MG PER DAY
     Route: 048
     Dates: start: 20031001, end: 20071009
  4. TOCOPHEROL D-ALPHA [Suspect]
     Dosage: 5CAP PER DAY
     Route: 048
     Dates: start: 20071004, end: 20071009
  5. SOLUPRED [Suspect]
     Route: 048
     Dates: start: 20070924, end: 20071110
  6. LEVOTHYROX [Concomitant]
     Route: 065
  7. PROZAC [Concomitant]
     Route: 065
  8. DEPAMIDE [Concomitant]
     Route: 065
  9. EQUANIL [Concomitant]
     Route: 065

REACTIONS (4)
  - DRUG INTERACTION [None]
  - FALL [None]
  - HAEMATOMA [None]
  - INTERNATIONAL NORMALISED RATIO INCREASED [None]
